FAERS Safety Report 9339021 (Version 1)
Quarter: 2013Q2

REPORT INFORMATION
  Report Type: Spontaneous
  Country: PL (occurrence: PL)
  Receive Date: 20130610
  Receipt Date: 20130610
  Transmission Date: 20140414
  Serious: Yes (Other)
  Sender: FDA-Public Use
  Company Number: PL-BAYER-2013-070654

PATIENT
  Sex: 0

DRUGS (1)
  1. BETAFERON [Suspect]
     Route: 058

REACTIONS (3)
  - Multiple sclerosis [None]
  - Multiple sclerosis relapse [None]
  - Drug ineffective [None]
